FAERS Safety Report 9391270 (Version 2)
Quarter: 2013Q3

REPORT INFORMATION
  Report Type: Spontaneous
  Country: DE (occurrence: DE)
  Receive Date: 20130709
  Receipt Date: 20130719
  Transmission Date: 20140515
  Serious: Yes (Life-Threatening, Hospitalization)
  Sender: FDA-Public Use
  Company Number: DE-B.I. PHARMACEUTICALS,INC./RIDGEFIELD-2013-DE-01777DE

PATIENT
  Age: 73 Year
  Sex: Male
  Weight: 77 kg

DRUGS (1)
  1. TAMSULOSIN [Suspect]
     Indication: PROSTATOMEGALY
     Dosage: 1 ANZ
     Route: 048
     Dates: start: 20121106, end: 20121111

REACTIONS (10)
  - Pulmonary embolism [Recovered/Resolved]
  - Thrombosis [Recovered/Resolved]
  - Embolism [Not Recovered/Not Resolved]
  - Erectile dysfunction [Not Recovered/Not Resolved]
  - Dyspnoea exertional [Not Recovered/Not Resolved]
  - Total lung capacity decreased [Recovered/Resolved]
  - Myalgia [Recovered/Resolved]
  - Gait disturbance [Recovered/Resolved]
  - Local swelling [Recovered/Resolved]
  - Phlebitis [Recovered/Resolved]
